FAERS Safety Report 9567497 (Version 1)
Quarter: 2013Q3

REPORT INFORMATION
  Report Type: Spontaneous
  Country: US (occurrence: US)
  Receive Date: 20130930
  Receipt Date: 20130930
  Transmission Date: 20140515
  Serious: No
  Sender: FDA-Public Use
  Company Number: US-AMGEN-USASP2012073356

PATIENT
  Sex: Female

DRUGS (15)
  1. ENBREL [Suspect]
     Indication: PSORIATIC ARTHROPATHY
     Dosage: 50 MG, QWK
     Route: 058
  2. ENBREL [Suspect]
     Indication: RHEUMATOID ARTHRITIS
  3. PANTOPRAZOLE [Concomitant]
     Dosage: 20 MG, UNK
  4. SYNTHROID [Concomitant]
     Dosage: 25 MCG, UNK
  5. PROVENTIL                          /00139501/ [Concomitant]
     Dosage: 90 MCG, UNK
  6. TRAMADOL HCL [Concomitant]
     Dosage: 50 MG, UNK
  7. PRAVASTATIN [Concomitant]
     Dosage: 20 MG, UNK
  8. METAXALONE [Concomitant]
     Dosage: 800 MG, UNK
  9. HYDROCHLOROTH [Concomitant]
     Dosage: 12.5 MG, UNK
  10. KLOR-CON M10 [Concomitant]
     Dosage: 10 MEQ, UNK
  11. ALLOPURINOL [Concomitant]
     Dosage: 100 MG, UNK
  12. FISH OIL [Concomitant]
     Dosage: UNK
  13. BENICAR [Concomitant]
     Dosage: 20 MG, UNK
  14. MULTIVITAMIN                       /00097801/ [Concomitant]
     Dosage: UNK
  15. TYLENOL                            /00020001/ [Concomitant]
     Dosage: 325 MG, UNK

REACTIONS (1)
  - Drug ineffective [Unknown]
